FAERS Safety Report 4699753-7 (Version None)
Quarter: 2005Q2

REPORT INFORMATION
  Report Type: 
  Country: None (occurrence: None)
  Receive Date: 20050623
  Receipt Date: 20050610
  Transmission Date: 20051028
  Serious: Yes (Other)
  Sender: FDA-Public Use
  Company Number: 2005087200

PATIENT
  Sex: Female
  Weight: 52.1637 kg

DRUGS (3)
  1. BENADRYL [Suspect]
     Indication: ASTHMA
     Dosage: 8 TABS QD; 3 TABS QD; 2 ULTRATABS
     Dates: start: 19850101
  2. ACETAMINOPHEN [Concomitant]
  3. BUDESONIDE [Concomitant]

REACTIONS (8)
  - ADRENAL DISORDER [None]
  - BLOOD CORTISOL DECREASED [None]
  - IMMUNOSUPPRESSION [None]
  - MIGRAINE [None]
  - PARAESTHESIA [None]
  - PITTING OEDEMA [None]
  - POST-TRAUMATIC STRESS DISORDER [None]
  - SWELLING FACE [None]
